FAERS Safety Report 4961039-0 (Version None)
Quarter: 2006Q1

REPORT INFORMATION
  Report Type: 
  Country: None (occurrence: None)
  Receive Date: 20060328
  Receipt Date: 20060313
  Transmission Date: 20060701
  Serious: Yes (Disabling, Other)
  Sender: FDA-Public Use
  Company Number: VNL_0118_2006

PATIENT
  Age: 58 Year
  Sex: Female

DRUGS (5)
  1. APO-GO [Suspect]
     Indication: PARKINSON'S DISEASE
     Dosage: DF SC
     Route: 058
     Dates: start: 20051201, end: 20060101
  2. MIRAPEXIN [Concomitant]
  3. SYMMETREL [Concomitant]
  4. CO-BENELDOPA [Concomitant]
  5. CABASER [Concomitant]

REACTIONS (6)
  - DRY SKIN [None]
  - ERYTHEMA [None]
  - FALL [None]
  - INJECTION SITE NODULE [None]
  - INJECTION SITE RASH [None]
  - PRURITUS [None]
